FAERS Safety Report 10101783 (Version 1)
Quarter: 2014Q2

REPORT INFORMATION
  Report Type: Spontaneous
  Country: US (occurrence: None)
  Receive Date: 20140422
  Receipt Date: 20140422
  Transmission Date: 20141212
  Serious: Yes (Hospitalization, Other)
  Sender: FDA-Public Use
  Company Number: 2014P1003290

PATIENT
  Age: 33 Year
  Sex: Female

DRUGS (1)
  1. FLUOXETINE [Suspect]
     Indication: OBSESSIVE-COMPULSIVE DISORDER

REACTIONS (7)
  - Headache [None]
  - Insomnia [None]
  - Cerebral vasoconstriction [None]
  - Hypersensitivity [None]
  - Maternal exposure during pregnancy [None]
  - Anxiety [None]
  - Caesarean section [None]
